FAERS Safety Report 8491253-1 (Version None)
Quarter: 2012Q3

REPORT INFORMATION
  Report Type: 
  Country: None (occurrence: None)
  Receive Date: 20120706
  Receipt Date: 20120702
  Transmission Date: 20120928
  Serious: Yes (Other)
  Sender: FDA-Public Use
  Company Number: PHHY2012JP057519

PATIENT
  Age: 52 Year

DRUGS (1)
  1. OCTREOTIDE ACETATE [Suspect]
     Indication: CONGESTIVE CARDIOMYOPATHY
     Dosage: UNK UKN, UNK
     Route: 058

REACTIONS (1)
  - BLOOD GLUCOSE INCREASED [None]
